FAERS Safety Report 5160534-1 (Version None)
Quarter: 2006Q4

REPORT INFORMATION
  Report Type: 
  Country: None (occurrence: None)
  Receive Date: 20061120
  Receipt Date: 20061101
  Transmission Date: 20070319
  Serious: Yes (Hospitalization)
  Sender: FDA-Public Use
  Company Number: 149334USA

PATIENT
  Age: 38 Year
  Sex: Male

DRUGS (4)
  1. FLUCONAZOLE [Suspect]
     Dosage: 400 MG (400 MG, 1 IN 1 D), INTRAVENOUS
     Route: 042
  2. VANCOMYCIN [Concomitant]
  3. IMIPENEM [Concomitant]
  4. BACTRIM [Concomitant]

REACTIONS (1)
  - ADRENAL INSUFFICIENCY [None]
